FAERS Safety Report 9513572 (Version 2)
Quarter: 2013Q3

REPORT INFORMATION
  Report Type: Spontaneous
  Country: DE (occurrence: DE)
  Receive Date: 20130910
  Receipt Date: 20130910
  Transmission Date: 20140515
  Serious: Yes (Other)
  Sender: FDA-Public Use
  Company Number: DE-B.I. PHARMACEUTICALS,INC./RIDGEFIELD-2013-DE-01868DE

PATIENT
  Sex: Male

DRUGS (4)
  1. AGGRENOX [Suspect]
     Indication: CAROTID ARTERY STENOSIS
     Dates: start: 201304
  2. AGGRENOX [Suspect]
     Dates: start: 201304
  3. ASPIRIN PROTECT 100 [Concomitant]
  4. MISCELLANEOUS DIETARY SUPPLEMENT [Concomitant]

REACTIONS (3)
  - Deafness [Unknown]
  - Insomnia [Unknown]
  - Aphasia [Unknown]
